FAERS Safety Report 7054147-4 (Version None)
Quarter: 2010Q4

REPORT INFORMATION
  Report Type: 
  Country: None (occurrence: None)
  Receive Date: 20101015
  Receipt Date: 20100930
  Transmission Date: 20110411
  Serious: Yes (Hospitalization, Disabling)
  Sender: FDA-Public Use
  Company Number: TCI2010A04190

PATIENT
  Age: 50 Year
  Sex: Male

DRUGS (6)
  1. ACTOS [Suspect]
     Indication: TYPE 2 DIABETES MELLITUS
     Dosage: 15 MG (15 MG, 1 D), PER ORAL
     Route: 048
     Dates: start: 20090717, end: 20090729
  2. ALPHA GLUCOSIDASE INHIBITORS [Concomitant]
  3. SULFONAMIDES, UREA DERIAVATIVES [Concomitant]
  4. CALCIUM CHANNEL BLOCKERS [Concomitant]
  5. ACE INHIBITOR NOS [Concomitant]
  6. HMG COA RECUCTABLE INHIBITORS [Concomitant]

REACTIONS (3)
  - ALTERED STATE OF CONSCIOUSNESS [None]
  - CEREBRAL HAEMATOMA [None]
  - CEREBRAL INFARCTION [None]
